FAERS Safety Report 7284573-X (Version None)
Quarter: 2011Q1

REPORT INFORMATION
  Report Type: 
  Country: None (occurrence: None)
  Receive Date: 20110210
  Receipt Date: 20110202
  Transmission Date: 20110831
  Serious: Yes (Hospitalization)
  Sender: FDA-Public Use
  Company Number: US-BIOGENIDEC-2008BI028786

PATIENT
  Age: 37 Year
  Sex: Female
  Weight: 67 kg

DRUGS (3)
  1. AVONEX [Suspect]
     Indication: MULTIPLE SCLEROSIS
     Route: 030
  2. STEROIDS (NOS) [Concomitant]
     Route: 042
  3. AVONEX [Suspect]
     Route: 030
     Dates: start: 19960501

REACTIONS (3)
  - CERVIX CARCINOMA STAGE 0 [None]
  - WEIGHT INCREASED [None]
  - MULTIPLE SCLEROSIS RELAPSE [None]
